FAERS Safety Report 19732388 (Version 1)
Quarter: 2021Q3

REPORT INFORMATION
  Report Type: Spontaneous
  Country: US (occurrence: US)
  Receive Date: 20210822
  Receipt Date: 20210822
  Transmission Date: 20211014
  Serious: Yes (Hospitalization, Other)
  Sender: FDA-Public Use
  Company Number: US-AUROBINDO-AUR-APL-2021-035472

PATIENT
  Age: 9 Year

DRUGS (5)
  1. CITALOPRAM [Suspect]
     Active Substance: CITALOPRAM HYDROBROMIDE
     Dosage: 1030 MILLIGRAM
     Route: 065
  2. RISPERIDONE. [Suspect]
     Active Substance: RISPERIDONE
     Dosage: 1.75 MILLIGRAM, TWO TIMES A DAY
     Route: 065
  3. CITALOPRAM [Suspect]
     Active Substance: CITALOPRAM HYDROBROMIDE
     Indication: ABDOMINAL PAIN
     Dosage: 30 MILLIGRAM DAILY
     Route: 065
  4. CHLORPROMAZINE. [Concomitant]
     Active Substance: CHLORPROMAZINE
     Indication: ABDOMINAL PAIN
     Dosage: UNK
     Route: 065
  5. RISPERIDONE. [Suspect]
     Active Substance: RISPERIDONE
     Indication: ABDOMINAL PAIN
     Dosage: 1 MILLIGRAM
     Route: 065

REACTIONS (5)
  - Insomnia [Unknown]
  - Hyperprolactinaemia [Unknown]
  - Delusional perception [Recovered/Resolved]
  - Agitation [Unknown]
  - Restlessness [Unknown]
